FAERS Safety Report 8486687-5 (Version None)
Quarter: 2012Q3

REPORT INFORMATION
  Report Type: 
  Country: None (occurrence: None)
  Receive Date: 20120704
  Receipt Date: 20120621
  Transmission Date: 20120928
  Serious: Yes (Other)
  Sender: FDA-Public Use
  Company Number: IT-ACCORD-013957

PATIENT
  Sex: Female

DRUGS (1)
  1. PACLITAXEL [Suspect]
     Dosage: CYCLIC
     Route: 042
     Dates: start: 20120611, end: 20120611

REACTIONS (5)
  - BRONCHOSPASM [None]
  - FLUSHING [None]
  - HYPERHIDROSIS [None]
  - CHEST PAIN [None]
  - COUGH [None]
